FAERS Safety Report 7599866-6 (Version None)
Quarter: 2011Q3

REPORT INFORMATION
  Report Type: 
  Country: None (occurrence: None)
  Receive Date: 20110711
  Receipt Date: 20110705
  Transmission Date: 20111222
  Serious: No
  Sender: FDA-Public Use
  Company Number: US-PFIZER INC-2011035251

PATIENT
  Sex: Female
  Weight: 63.4 kg

DRUGS (2)
  1. ADVIL CONGESTION RELIEF [Suspect]
     Indication: SINUS CONGESTION
     Dosage: 200/10 MG
     Route: 048
     Dates: start: 20110214, end: 20110214
  2. ADVIL CONGESTION RELIEF [Suspect]
     Indication: HEADACHE

REACTIONS (1)
  - DRUG INEFFECTIVE [None]
